FAERS Safety Report 6389046-4 (Version None)
Quarter: 2009Q4

REPORT INFORMATION
  Report Type: 
  Country: None (occurrence: None)
  Receive Date: 20091001
  Receipt Date: 20090916
  Transmission Date: 20100525
  Serious: Yes (Other)
  Sender: FDA-Public Use
  Company Number: 1-20004534

PATIENT
  Age: 58 Year
  Sex: Male
  Weight: 52.8894 kg

DRUGS (4)
  1. ULTIVA [Suspect]
     Indication: ANALGESIC THERAPY
     Dosage: 0.25 MCG/KG/MIN; UNKNOWN
  2. ULTIVA [Suspect]
     Indication: SEDATIVE THERAPY
     Dosage: 0.25 MCG/KG/MIN; UNKNOWN
  3. BUTORPHANOL TARTRATE [Suspect]
     Indication: INSOMNIA
     Dosage: 0.12 MG/HR;
  4. MIDAZOLAM HCL [Concomitant]

REACTIONS (8)
  - DRUG INTERACTION [None]
  - DRUG WITHDRAWAL SYNDROME [None]
  - HYPERHIDROSIS [None]
  - HYPERTENSION [None]
  - MUSCLE TWITCHING [None]
  - MYDRIASIS [None]
  - RHINORRHOEA [None]
  - TACHYCARDIA [None]
